FAERS Safety Report 8388309-0 (Version None)
Quarter: 2012Q2

REPORT INFORMATION
  Report Type: 
  Country: None (occurrence: None)
  Receive Date: 20120525
  Receipt Date: 20120522
  Transmission Date: 20120825
  Serious: Yes (Hospitalization, Other)
  Sender: FDA-Public Use
  Company Number: US-TEVA-339611USA

PATIENT
  Age: 68 Year
  Sex: Female

DRUGS (1)
  1. TREANDA [Suspect]
     Indication: CHRONIC LYMPHOCYTIC LEUKAEMIA
     Dosage: UNKNOWN DOSE, DISCONTINUED AFTER 5 CYCLES
     Route: 042

REACTIONS (2)
  - HAEMOLYTIC ANAEMIA [None]
  - BLOOD COUNT ABNORMAL [None]
